FAERS Safety Report 9601213 (Version 4)
Quarter: 2013Q4

REPORT INFORMATION
  Report Type: Spontaneous
  Country: CA (occurrence: CA)
  Receive Date: 20131005
  Receipt Date: 20131112
  Transmission Date: 20140711
  Serious: Yes (Other)
  Sender: FDA-Public Use
  Company Number: CA-JNJFOC-20130905878

PATIENT
  Sex: Female

DRUGS (2)
  1. REACTINE EXTRA STRENGTH [Suspect]
     Indication: MULTIPLE ALLERGIES
     Route: 048
  2. REACTINE EXTRA STRENGTH [Suspect]
     Indication: ASTHMA
     Route: 048

REACTIONS (4)
  - Myocardial infarction [Unknown]
  - Off label use [Unknown]
  - Therapeutic response unexpected [Unknown]
  - Product tampering [Unknown]
